FAERS Safety Report 6380192-8 (Version None)
Quarter: 2009Q3

REPORT INFORMATION
  Report Type: 
  Country: None (occurrence: None)
  Receive Date: 20090929
  Receipt Date: 20090916
  Transmission Date: 20100115
  Serious: Yes (Hospitalization)
  Sender: FDA-Public Use
  Company Number: US-RANBAXY-2009RR-28175

PATIENT
  Age: 69 Year
  Sex: Female

DRUGS (7)
  1. FLECAINIDE ACETATE [Suspect]
     Indication: ATRIAL FIBRILLATION
     Dosage: 100 MG, BID
  2. FLECAINIDE ACETATE [Suspect]
     Dosage: 50 MG, QID
  3. PAROXETINE [Suspect]
     Indication: MAJOR DEPRESSION
     Dosage: 40 MG, QD
  4. CARVEDILOL [Concomitant]
  5. WARFARIN [Concomitant]
  6. LEVOTHYROXINE SODIUM [Concomitant]
  7. PANTOPRAZOLE SODIUM [Concomitant]

REACTIONS (2)
  - DELIRIUM [None]
  - DRUG INTERACTION [None]
